FAERS Safety Report 22673074 (Version 3)
Quarter: 2023Q4

REPORT INFORMATION
  Report Type: Spontaneous
  Country: US (occurrence: US)
  Receive Date: 20230705
  Receipt Date: 20231201
  Transmission Date: 20240110
  Serious: No
  Sender: FDA-Public Use
  Company Number: US-AMGEN-USASP2023115787

PATIENT
  Age: 68 Year
  Sex: Female
  Weight: 153 kg

DRUGS (1)
  1. REPATHA [Suspect]
     Active Substance: EVOLOCUMAB
     Indication: Dyslipidaemia
     Dosage: 140 MILLIGRAM, QMO
     Route: 030

REACTIONS (5)
  - Drug dose omission by device [Unknown]
  - Product communication issue [Unknown]
  - Incorrect route of product administration [Unknown]
  - Off label use [Unknown]
  - Device use error [Unknown]

NARRATIVE: CASE EVENT DATE: 20230702
